FAERS Safety Report 8459823-4 (Version None)
Quarter: 2012Q2

REPORT INFORMATION
  Report Type: 
  Country: None (occurrence: None)
  Receive Date: 20120622
  Receipt Date: 20120615
  Transmission Date: 20120825
  Serious: Yes (Hospitalization, Other)
  Sender: FDA-Public Use
  Company Number: PHHY2012CA051771

PATIENT
  Sex: Male

DRUGS (1)
  1. SANDOSTATIN [Suspect]
     Indication: HAEMORRHAGE
     Dosage: 150 UG, TID
     Route: 058

REACTIONS (5)
  - POSTOPERATIVE WOUND INFECTION [None]
  - HYPOTENSION [None]
  - TACHYCARDIA [None]
  - HAEMORRHAGE [None]
  - BONE DISORDER [None]
